FAERS Safety Report 9286330 (Version 1)
Quarter: 2013Q2

REPORT INFORMATION
  Report Type: Spontaneous
  Country: US (occurrence: US)
  Receive Date: 20130513
  Receipt Date: 20130513
  Transmission Date: 20140414
  Serious: Yes (Other)
  Sender: FDA-Public Use
  Company Number: US-PFIZER INC-2013145285

PATIENT
  Age: 5 Year
  Sex: Male

DRUGS (2)
  1. QUILLIVANT XR [Suspect]
     Indication: ATTENTION DEFICIT/HYPERACTIVITY DISORDER
     Dosage: 10 MG, DAILY
  2. QUILLIVANT XR [Suspect]
     Dosage: 5 MG, DAILY

REACTIONS (3)
  - Tic [Recovered/Resolved]
  - Strabismus [Recovered/Resolved]
  - Oromandibular dystonia [Recovered/Resolved]
